FAERS Safety Report 14137483 (Version 1)
Quarter: 2017Q4

REPORT INFORMATION
  Report Type: Spontaneous
  Country: IT (occurrence: IT)
  Receive Date: 20171027
  Receipt Date: 20171027
  Transmission Date: 20180321
  Serious: Yes (Other)
  Sender: FDA-Public Use
  Company Number: IT-PFIZER INC-2017461763

PATIENT
  Age: 71 Year
  Sex: Female

DRUGS (4)
  1. EN [Suspect]
     Active Substance: DELORAZEPAM
     Indication: ANXIETY
     Dosage: 1 DF, DAILY
     Route: 048
     Dates: start: 20170101, end: 20170425
  2. EFFEXOR XR [Suspect]
     Active Substance: VENLAFAXINE HYDROCHLORIDE
     Indication: DEPRESSION
     Dosage: 1 DF, DAILY
     Route: 048
     Dates: start: 20170101, end: 20170425
  3. DEPAKIN [Suspect]
     Active Substance: VALPROATE SODIUM
     Dosage: 2 DF, DAILY
     Route: 048
     Dates: start: 20170101, end: 20170425
  4. LARGACTIL /00011901/ [Suspect]
     Active Substance: CHLORPROMAZINE
     Dosage: 2 DF, DAILY
     Route: 048
     Dates: start: 20170101, end: 20170425

REACTIONS (2)
  - Drop attacks [Recovering/Resolving]
  - Sopor [Recovering/Resolving]

NARRATIVE: CASE EVENT DATE: 20170425
